FAERS Safety Report 9051929 (Version 1)
Quarter: 2013Q1

REPORT INFORMATION
  Report Type: Spontaneous
  Country: US (occurrence: None)
  Receive Date: 20130130
  Receipt Date: 20130130
  Transmission Date: 20140127
  Serious: Yes (Hospitalization)
  Sender: FDA-Public Use
  Company Number: None

PATIENT
  Sex: Female
  Weight: 69.9 kg

DRUGS (5)
  1. 5-FLUOROURACIL [Suspect]
  2. OXALIPLATIN [Suspect]
  3. LISINOPRIL -HCTZ [Concomitant]
  4. OMEPRAZOLE [Concomitant]
  5. VITAMIN D [Concomitant]

REACTIONS (4)
  - Abdominal pain [None]
  - Diarrhoea [None]
  - Haematochezia [None]
  - Febrile neutropenia [None]
